FAERS Safety Report 8952789 (Version 1)
Quarter: 2012Q4

REPORT INFORMATION
  Report Type: 
  Country: JP (occurrence: JP)
  Receive Date: 20121204
  Receipt Date: 20121204
  Transmission Date: 20130627
  Serious: Yes (Hospitalization, Other)
  Sender: FDA-Public Use
  Company Number: JP-AMGEN-JPNCT2012044818

PATIENT
  Age: 81 Year
  Sex: Female
  Weight: 59 kg

DRUGS (27)
  1. DARBEPOETIN ALFA [Suspect]
     Indication: NEPHROGENIC ANAEMIA
     Dosage: 60 mug, qd
     Route: 058
     Dates: start: 20101224
  2. DARBEPOETIN ALFA [Suspect]
     Dosage: 60 mug, UNK
     Route: 058
     Dates: start: 20110121, end: 20110225
  3. DARBEPOETIN ALFA [Suspect]
     Dosage: 120 mug, UNK
     Route: 058
     Dates: start: 20110401, end: 20110506
  4. DARBEPOETIN ALFA [Suspect]
     Dosage: 120 mug, qd
     Route: 058
     Dates: start: 20110617, end: 20110617
  5. DARBEPOETIN ALFA [Suspect]
     Dosage: 120 mug, qd
     Route: 058
     Dates: start: 20110729, end: 20110729
  6. DARBEPOETIN ALFA [Suspect]
     Dosage: 120 mug, qd
     Route: 058
     Dates: start: 20110902, end: 20110902
  7. DARBEPOETIN ALFA [Suspect]
     Dosage: 120 mug, qd
     Route: 058
     Dates: start: 20111007, end: 20111007
  8. DARBEPOETIN ALFA [Suspect]
     Dosage: 120 mug, qd
     Route: 058
     Dates: start: 20111202
  9. ALFAROL [Concomitant]
     Dosage: UNK
     Route: 048
  10. AMLODIN [Concomitant]
     Dosage: UNK
     Route: 048
  11. ZYLORIC [Concomitant]
     Dosage: UNK
     Route: 048
  12. TAKEPRON [Concomitant]
     Dosage: UNK
     Route: 048
  13. BLOPRESS [Concomitant]
     Dosage: UNK
     Route: 048
  14. ASTAT [Concomitant]
     Dosage: UNK
     Route: 061
  15. BUFFERIN [Concomitant]
     Dosage: 81 mg, UNK
     Route: 048
  16. LASIX [Concomitant]
     Dosage: UNK
     Route: 048
  17. PLAVIX [Concomitant]
     Dosage: UNK
     Route: 048
  18. ARTIST [Concomitant]
     Dosage: UNK
     Route: 048
  19. PARIET [Concomitant]
     Dosage: UNK
     Route: 048
  20. FRANDOL S [Concomitant]
     Dosage: UNK
     Route: 061
  21. ZYRTEC [Concomitant]
     Dosage: UNK
     Route: 048
  22. NEOMALLERMIN TR [Concomitant]
     Dosage: UNK
     Route: 048
  23. RINDERON-VG [Concomitant]
     Dosage: UNK
     Route: 061
  24. ZINC OXIDE [Concomitant]
     Dosage: UNK
     Route: 061
  25. RINDERON-DP [Concomitant]
     Dosage: UNK
     Route: 061
  26. WHITE PETROLATUM [Concomitant]
     Dosage: UNK
     Route: 061
  27. PROSTANDIN [Concomitant]
     Dosage: UNK
     Route: 061

REACTIONS (2)
  - Cardiac failure [Recovering/Resolving]
  - Acute myocardial infarction [Recovering/Resolving]
